FAERS Safety Report 8297618-5 (Version None)
Quarter: 2012Q2

REPORT INFORMATION
  Report Type: 
  Country: None (occurrence: None)
  Receive Date: 20120419
  Receipt Date: 20120411
  Transmission Date: 20120825
  Serious: Yes (Other)
  Sender: FDA-Public Use
  Company Number: US-CELGENEUS-163-21880-12041345

PATIENT
  Sex: Male
  Weight: 111.23 kg

DRUGS (7)
  1. ASPIRIN [Concomitant]
     Route: 065
  2. REVLIMID [Suspect]
     Indication: MULTIPLE MYELOMA
     Dosage: 25 MILLIGRAM
     Route: 048
     Dates: start: 20111019, end: 20120213
  3. NUTRI DRINK [Concomitant]
     Route: 065
  4. CYTOXAN [Concomitant]
     Route: 065
     Dates: start: 20120101
  5. TYLENOL (CAPLET) [Concomitant]
     Route: 065
  6. DEXAMETHASONE [Concomitant]
     Route: 065
     Dates: start: 20120101
  7. OMEPRAZOLE [Concomitant]
     Route: 065

REACTIONS (1)
  - BLOOD DISORDER [None]
